FAERS Safety Report 6737572-8 (Version None)
Quarter: 2010Q2

REPORT INFORMATION
  Report Type: 
  Country: None (occurrence: None)
  Receive Date: 20100521
  Receipt Date: 20100521
  Transmission Date: 20101027
  Serious: Yes (Life-Threatening)
  Sender: FDA-Public Use
  Company Number: None

PATIENT
  Age: 72 Year
  Sex: Male
  Weight: 62 kg

DRUGS (8)
  1. DROTRECOGIN ALFA [Suspect]
     Indication: SEPTIC SHOCK
     Dosage: IV DRIP
     Route: 041
     Dates: start: 20100407, end: 20100407
  2. CEFEPIME [Concomitant]
  3. VANCOMYCIN [Concomitant]
  4. LEVOFLOXACIN [Concomitant]
  5. PANTOPRAZOLE [Concomitant]
  6. INSULIN [Concomitant]
  7. NOREPINEPHRINE [Concomitant]
  8. VASOPRESSIN [Concomitant]

REACTIONS (4)
  - BLOOD PRESSURE DECREASED [None]
  - GENERAL PHYSICAL HEALTH DETERIORATION [None]
  - INFUSION RELATED REACTION [None]
  - ORGAN FAILURE [None]
